FAERS Safety Report 14206749 (Version 1)
Quarter: 2017Q4

REPORT INFORMATION
  Report Type: Spontaneous
  Country: GB (occurrence: GB)
  Receive Date: 20171121
  Receipt Date: 20171121
  Transmission Date: 20180321
  Serious: Yes (Other)
  Sender: FDA-Public Use
  Company Number: GB-ACCORD-061121

PATIENT
  Age: 76 Year
  Sex: Male

DRUGS (4)
  1. URSODEOXYCHOLIC ACID [Concomitant]
     Active Substance: URSODIOL
  2. COLESTYRAMINE [Concomitant]
     Active Substance: CHOLESTYRAMINE
  3. MYCOPHENOLIC ACID. [Suspect]
     Active Substance: MYCOPHENOLIC ACID
     Indication: IMMUNOSUPPRESSION
     Dosage: 500 MG TWICE DAILY ORALLY
     Route: 048
  4. PREDNISOLONE. [Suspect]
     Active Substance: PREDNISOLONE
     Indication: IMMUNOSUPPRESSION
     Dosage: 1 MG/KG ONCE DAILY
     Route: 048

REACTIONS (1)
  - Lymphopenia [Unknown]
